FAERS Safety Report 8910583 (Version 1)
Quarter: 2012Q4

REPORT INFORMATION
  Report Type: 
  Country: BR (occurrence: BR)
  Receive Date: 20121114
  Receipt Date: 20121114
  Transmission Date: 20130627
  Serious: Yes (Hospitalization)
  Sender: FDA-Public Use
  Company Number: BR-GLAXOSMITHKLINE-A1000761A

PATIENT
  Age: 82 Year
  Sex: Male
  Weight: 76 kg

DRUGS (7)
  1. VALTREX [Suspect]
     Indication: HERPES ZOSTER
     Dosage: 1000MG Three times per day
     Route: 048
     Dates: start: 20121101
  2. PARACETAMOL + CODEINE [Suspect]
     Indication: PAIN
     Dosage: 1TAB Per day
     Route: 048
     Dates: start: 20121101
  3. CLONAZEPAM [Suspect]
     Indication: PRODUCT USED FOR UNKNOWN INDICATION
     Dosage: .5MG At night
     Route: 065
     Dates: start: 20121101
  4. MORPHINE [Suspect]
     Indication: PAIN
     Route: 065
     Dates: start: 20121030
  5. PROPRANOLOL HYDROCHLORIDE [Concomitant]
     Dosage: 1TAB Per day
     Route: 048
     Dates: start: 2000
  6. CAPTOPRIL [Concomitant]
     Dosage: 1TAB Per day
     Route: 048
     Dates: start: 2000
  7. BETAHISTINE [Concomitant]
     Dosage: 1TAB per day
     Route: 048
     Dates: start: 2007

REACTIONS (5)
  - Hallucination [Not Recovered/Not Resolved]
  - Agitation [Not Recovered/Not Resolved]
  - Aggression [Not Recovered/Not Resolved]
  - Feeling hot [Unknown]
  - Anxiety [Unknown]
